FAERS Safety Report 10581721 (Version 1)
Quarter: 2014Q4

REPORT INFORMATION
  Report Type: Spontaneous
  Country: US (occurrence: US)
  Receive Date: 20141113
  Receipt Date: 20141113
  Transmission Date: 20150529
  Serious: Yes (Other)
  Sender: FDA-Public Use
  Company Number: US-SA-2014SA155037

PATIENT

DRUGS (1)
  1. NASACORT ALLERGY 24HR [Suspect]
     Active Substance: TRIAMCINOLONE ACETONIDE
     Dosage: DOSE-TWO SPRAYS IN EACH NOSTRIL, TAKEN FROM- A MONTH AGO
     Route: 045

REACTIONS (1)
  - Gastrointestinal fungal infection [Unknown]
